FAERS Safety Report 8879473 (Version 1)
Quarter: 2012Q4

REPORT INFORMATION
  Report Type: 
  Country: BR (occurrence: BR)
  Receive Date: 20121031
  Receipt Date: 20121031
  Transmission Date: 20130627
  Serious: Yes (Hospitalization, Other)
  Sender: FDA-Public Use
  Company Number: BR-ASTRAZENECA-2012SE40963

PATIENT
  Age: 35 Year
  Sex: Female

DRUGS (6)
  1. NEXIUM [Suspect]
     Indication: HIATUS HERNIA
     Route: 048
     Dates: start: 2009
  2. NEXIUM [Suspect]
     Indication: GASTRITIS
     Route: 048
     Dates: start: 2009
  3. NEXIUM [Suspect]
     Indication: HIATUS HERNIA
     Route: 048
     Dates: end: 201208
  4. NEXIUM [Suspect]
     Indication: GASTRITIS
     Route: 048
     Dates: end: 201208
  5. UNSPECIFIED INGREDIENT [Suspect]
     Route: 048
  6. CERAZETTE [Suspect]
     Indication: CONTRACEPTION
     Route: 048
     Dates: end: 20120623

REACTIONS (4)
  - Pain [Unknown]
  - Cerebral thrombosis [Not Recovered/Not Resolved]
  - Dermatitis allergic [Recovered/Resolved]
  - Vasculitis [Not Recovered/Not Resolved]
